FAERS Safety Report 6986247-9 (Version None)
Quarter: 2010Q3

REPORT INFORMATION
  Report Type: 
  Country: None (occurrence: None)
  Receive Date: 20100915
  Receipt Date: 20090609
  Transmission Date: 20110219
  Serious: Yes (Other)
  Sender: FDA-Public Use
  Company Number: US-WYE-H09675609

PATIENT
  Sex: Female
  Weight: 79.9 kg

DRUGS (2)
  1. PRISTIQ [Suspect]
     Indication: ANXIETY
     Route: 048
     Dates: start: 20090115, end: 20090527
  2. PRISTIQ [Suspect]
     Indication: DEPRESSION

REACTIONS (2)
  - CONDITION AGGRAVATED [None]
  - HYPERTENSION [None]
